FAERS Safety Report 9479652 (Version 3)
Quarter: 2015Q1

REPORT INFORMATION
  Report Type: Report from Study
  Country: JP (occurrence: JP)
  Receive Date: 20130827
  Receipt Date: 20150123
  Transmission Date: 20150721
  Serious: Yes (Hospitalization, Other)
  Sender: FDA-Public Use
  Company Number: PHHO2009JP12144

PATIENT
  Age: 69 Year
  Sex: Male
  Weight: 95 kg

DRUGS (10)
  1. NU-LOTAN [Concomitant]
     Active Substance: LOSARTAN POTASSIUM
     Indication: HYPERTENSION
     Dosage: 50 MG, UNK
  2. EVIPROSTAT [Concomitant]
     Active Substance: CHIMAPHILA UMBELLATA\MANGANESE CHLORIDE\POPULUS TREMULOIDES\SODIUM TAUROCHOLATE
     Indication: BENIGN PROSTATIC HYPERPLASIA
     Route: 048
     Dates: start: 20090210
  3. BUP-4 [Concomitant]
     Active Substance: PROPIVERINE
     Indication: BENIGN PROSTATIC HYPERPLASIA
     Dosage: 20 MG, UNK
     Route: 048
     Dates: start: 20090210
  4. BLADDERON [Concomitant]
     Active Substance: FLAVOXATE
     Indication: BENIGN PROSTATIC HYPERPLASIA
     Dosage: 600 MG, UNK
     Route: 048
     Dates: start: 20090210
  5. WARFARIN [Concomitant]
     Active Substance: WARFARIN
     Indication: TYPE 2 DIABETES MELLITUS
     Dosage: 3.5 MG, UNK
     Route: 048
     Dates: start: 20090602
  6. URIEF [Concomitant]
     Active Substance: SILODOSIN
     Indication: BENIGN PROSTATIC HYPERPLASIA
     Dosage: 8 MG, UNK
     Route: 048
     Dates: start: 20090210
  7. ALISKIREN [Suspect]
     Active Substance: ALISKIREN
     Indication: CARDIOVASCULAR DISORDER
     Route: 048
     Dates: start: 20080619
  8. CONTRAST MEDIA [Concomitant]
     Active Substance: UNSPECIFIED INGREDIENT
  9. EPADEL [Concomitant]
     Active Substance: ICOSAPENT
     Indication: TYPE 2 DIABETES MELLITUS
     Dosage: 1800 MG, UNK
     Route: 048
  10. BEZATOL [Concomitant]
     Active Substance: BEZAFIBRATE
     Indication: HYPERLIPIDAEMIA
     Dosage: 200 MG, UNK
     Route: 048
     Dates: start: 20080814

REACTIONS (8)
  - Cardiomegaly [Unknown]
  - Aortic valve incompetence [Unknown]
  - Nausea [Recovered/Resolved]
  - Condition aggravated [Recovering/Resolving]
  - Tricuspid valve incompetence [Unknown]
  - Mitral valve incompetence [Unknown]
  - Oedema peripheral [Recovering/Resolving]
  - Inferior vena cava dilatation [Unknown]

NARRATIVE: CASE EVENT DATE: 20090929
